FAERS Safety Report 4973440-X (Version None)
Quarter: 2006Q2

REPORT INFORMATION
  Report Type: 
  Country: None (occurrence: None)
  Receive Date: 20060410
  Receipt Date: 20060329
  Transmission Date: 20061013
  Serious: No
  Sender: FDA-Public Use
  Company Number: TPA2006A00568

PATIENT
  Age: 59 Year
  Sex: Female

DRUGS (7)
  1. ROZEREM [Suspect]
     Indication: INITIAL INSOMNIA
     Dosage: 8 MG, QHS, PER ORAL
     Route: 048
     Dates: start: 20060221
  2. RESTORIL [Suspect]
     Indication: SLEEP DISORDER
     Dosage: INCREASED TO 30 MG, QHS,
  3. METHADONE HCL [Concomitant]
  4. PALLADONE [Concomitant]
  5. CYMBALTA [Concomitant]
  6. OXYCONTIN [Concomitant]
  7. PREMARIN [Concomitant]

REACTIONS (1)
  - INSOMNIA [None]
